FAERS Safety Report 8103860-6 (Version None)
Quarter: 2012Q1

REPORT INFORMATION
  Report Type: 
  Country: None (occurrence: None)
  Receive Date: 20120201
  Receipt Date: 20120126
  Transmission Date: 20120608
  Serious: Yes (Hospitalization, Other)
  Sender: FDA-Public Use
  Company Number: PHHY2011BR098200

PATIENT
  Sex: Female

DRUGS (2)
  1. DIOVAN HCT [Suspect]
     Dosage: 1 DF(160/12.5 MG), QD
  2. GALVUS MET [Suspect]
     Dosage: 1 DF(500/50 MG), TID

REACTIONS (2)
  - ACCIDENT [None]
  - PAIN IN EXTREMITY [None]
